FAERS Safety Report 26169866 (Version 1)
Quarter: 2025Q4

REPORT INFORMATION
  Report Type: Spontaneous
  Country: US (occurrence: US)
  Receive Date: 20251217
  Receipt Date: 20251217
  Transmission Date: 20260118
  Serious: Yes (Hospitalization, Other)
  Sender: Otter
  Company Number: US-OTTER-US-2025AST000508

PATIENT
  Age: 77 Year
  Sex: Female

DRUGS (4)
  1. METHOTREXATE [Suspect]
     Active Substance: METHOTREXATE
     Indication: Product used for unknown indication
     Dosage: UNK, WEEKLY
     Route: 065
  2. FOLIC ACID [Concomitant]
     Active Substance: FOLIC ACID
     Indication: Product used for unknown indication
     Dosage: UNK, DAILY
     Route: 065
  3. CIPROFLOXACIN [Concomitant]
     Active Substance: CIPROFLOXACIN
     Indication: Urinary tract infection
     Dosage: UNK UNK, UNK
     Route: 065
  4. NITROFURANTOIN [Concomitant]
     Active Substance: NITROFURANTOIN
     Indication: Urinary tract infection
     Dosage: UNK UNK, UNK
     Route: 065

REACTIONS (8)
  - Mental status changes [Recovering/Resolving]
  - Papule [Recovering/Resolving]
  - Vulvovaginal erythema [Recovering/Resolving]
  - Toxicity to various agents [Recovering/Resolving]
  - Skin ulcer [Recovering/Resolving]
  - Cytopenia [Recovering/Resolving]
  - Condition aggravated [Recovering/Resolving]
  - Mouth ulceration [Recovering/Resolving]
